FAERS Safety Report 6942471-2 (Version None)
Quarter: 2010Q3

REPORT INFORMATION
  Report Type: 
  Country: None (occurrence: None)
  Receive Date: 20100826
  Receipt Date: 20100818
  Transmission Date: 20110219
  Serious: Yes (Other)
  Sender: FDA-Public Use
  Company Number: CA-JNJFOC-20100806752

PATIENT
  Sex: Female
  Weight: 86 kg

DRUGS (11)
  1. REMICADE [Suspect]
     Indication: OSTEOARTHRITIS
     Dosage: 500 MG
     Route: 042
  2. REMICADE [Suspect]
     Indication: RHEUMATOID ARTHRITIS
     Dosage: 500 MG
     Route: 042
  3. METHOTREXATE [Concomitant]
  4. METOPROLOL [Concomitant]
  5. SYNTHROID [Concomitant]
  6. FOLIC ACID [Concomitant]
  7. ASPIRIN [Concomitant]
  8. SLOW-K [Concomitant]
  9. LIPITOR [Concomitant]
  10. FUROSEMIDE [Concomitant]
  11. PENNSAID [Concomitant]

REACTIONS (3)
  - DYSPHONIA [None]
  - DYSPNOEA EXERTIONAL [None]
  - LUNG DISORDER [None]
